FAERS Safety Report 4821031-3 (Version None)
Quarter: 2005Q4

REPORT INFORMATION
  Report Type: 
  Country: None (occurrence: None)
  Receive Date: 20051104
  Receipt Date: 20051104
  Transmission Date: 20060501
  Serious: Yes (Life-Threatening)
  Sender: FDA-Public Use
  Company Number: None

PATIENT
  Sex: Female
  Weight: 58.6 kg

DRUGS (7)
  1. IMATINIB MESYLATE 100MG CAPSULES [Suspect]
     Indication: GLIOBLASTOMA MULTIFORME
     Dosage: 400 MG PO BID X 8 DAYS
     Route: 048
     Dates: start: 20051005, end: 20051012
  2. TEMOZOLOMIDE SCHERING PLOUGH [Suspect]
     Indication: GLIOBLASTOMA MULTIFORME
     Dosage: 330 MG PO BID X 5 DAYS
     Route: 048
     Dates: start: 20051008, end: 20051012
  3. LOVENOX SC [Concomitant]
  4. PROTONIX [Concomitant]
  5. ZOLOFT [Concomitant]
  6. METFORMIN [Concomitant]
  7. COLACE [Concomitant]

REACTIONS (4)
  - DRUG TOXICITY [None]
  - NEOPLASM PROGRESSION [None]
  - PLATELET COUNT INCREASED [None]
  - THROMBOCYTOPENIA [None]
